FAERS Safety Report 19442229 (Version 1)
Quarter: 2021Q2

REPORT INFORMATION
  Report Type: Spontaneous
  Country: US (occurrence: US)
  Receive Date: 20210618
  Receipt Date: 20210618
  Transmission Date: 20210717
  Serious: No
  Sender: FDA-Public Use
  Company Number: None

PATIENT
  Age: 60 Year
  Sex: Female
  Weight: 43.65 kg

DRUGS (3)
  1. CAPSAICIN HEAT PATCHES BACK AND LARGE AREAS [Suspect]
     Active Substance: CAPSAICIN
     Indication: MUSCLE SPASMS
     Dosage: ?          QUANTITY:2 PATCH(ES);?
     Route: 062
     Dates: start: 20210618, end: 20210618
  2. L?THEANINE (DIETARY SUPPLEMENT) [Concomitant]
     Active Substance: DIETARY SUPPLEMENT
  3. MELATONIN [Concomitant]
     Active Substance: MELATONIN

REACTIONS (5)
  - Blister [None]
  - Skin weeping [None]
  - Injury associated with device [None]
  - Product adhesion issue [None]
  - Skin exfoliation [None]

NARRATIVE: CASE EVENT DATE: 20210618
